FAERS Safety Report 15052961 (Version 4)
Quarter: 2021Q4

REPORT INFORMATION
  Report Type: Report from Study
  Country: US (occurrence: US)
  Receive Date: 20180622
  Receipt Date: 20211214
  Transmission Date: 20220303
  Serious: No
  Sender: FDA-Public Use
  Company Number: PHEH2018US025216

PATIENT
  Age: 51 Year
  Sex: Male
  Weight: 134.72 kg

DRUGS (2)
  1. ENTRESTO [Suspect]
     Active Substance: SACUBITRIL\VALSARTAN
     Indication: Cardiac failure
     Route: 065
  2. ENTRESTO [Suspect]
     Active Substance: SACUBITRIL\VALSARTAN
     Dosage: 1 DOSAGE FORM, (97.103 MG) BID
     Route: 048
     Dates: start: 2019, end: 20211208

REACTIONS (6)
  - Lower limb fracture [Unknown]
  - Foot fracture [Unknown]
  - Lethargy [Recovering/Resolving]
  - Fall [Unknown]
  - Headache [Recovering/Resolving]
  - Product availability issue [Unknown]

NARRATIVE: CASE EVENT DATE: 20211110
